FAERS Safety Report 8860232 (Version 2)
Quarter: 2012Q4

REPORT INFORMATION
  Report Type: 
  Country: ES (occurrence: ES)
  Receive Date: 20121025
  Receipt Date: 20121113
  Transmission Date: 20130627
  Serious: Yes (Other)
  Sender: FDA-Public Use
  Company Number: ES-PAR PHARMACEUTICAL, INC-2012SCPR004672

PATIENT

DRUGS (4)
  1. DIAZEPAM [Suspect]
     Indication: PRODUCT USED FOR UNKNOWN INDICATION
     Dosage: 4-5 tablets
     Route: 048
  2. OPIOIDS [Concomitant]
     Indication: PRODUCT USED FOR UNKNOWN INDICATION
     Dosage: UNK, Unknown
     Route: 065
  3. COCAINE [Concomitant]
     Indication: PRODUCT USED FOR UNKNOWN INDICATION
     Dosage: UNK, Unknown
     Route: 065
  4. LORAZEPAM [Concomitant]
     Indication: INSOMNIA
     Dosage: 1 mg, OD
     Route: 065

REACTIONS (6)
  - Accidental exposure to product [Unknown]
  - suspected chemical submission [Unknown]
  - Victim of sexual abuse [Unknown]
  - Amnesia [Unknown]
  - Gait disturbance [Unknown]
  - Diplopia [Unknown]
